FAERS Safety Report 8319481-6 (Version None)
Quarter: 2012Q2

REPORT INFORMATION
  Report Type: 
  Country: None (occurrence: None)
  Receive Date: 20120427
  Receipt Date: 20120418
  Transmission Date: 20120825
  Serious: Yes (Other)
  Sender: FDA-Public Use
  Company Number: FR-VALEANT-2012VX001863

PATIENT
  Sex: Female

DRUGS (7)
  1. CYCLOPHOSPHAMIDE [Suspect]
     Indication: BREAST CANCER
     Dosage: DOSE UNIT:500
     Route: 042
  2. EPIRUBICIN [Suspect]
     Indication: BREAST CANCER
     Dosage: DOSE UNIT:100
     Route: 042
  3. DOCETAXEL [Suspect]
     Indication: BREAST CANCER
     Dosage: DOSE UNIT:100
     Route: 042
     Dates: start: 20050301, end: 20050901
  4. CORTICOSTEROIDS [Concomitant]
     Route: 065
  5. FLUOROURACIL [Suspect]
     Indication: BREAST CANCER
     Dosage: DOSE UNIT:500
     Route: 042
  6. DOCETAXEL [Suspect]
     Dosage: DOSE UNIT:100
     Route: 042
     Dates: start: 20050301, end: 20050901
  7. FILGRASTIM [Concomitant]
     Route: 065

REACTIONS (1)
  - SKIN TOXICITY [None]
